FAERS Safety Report 7531087-5 (Version None)
Quarter: 2011Q2

REPORT INFORMATION
  Report Type: 
  Country: None (occurrence: None)
  Receive Date: 20110526
  Receipt Date: 20110502
  Transmission Date: 20111010
  Serious: Yes (Other)
  Sender: FDA-Public Use
  Company Number: 2011SP022809

PATIENT

DRUGS (2)
  1. INTERFERON ALFA-2B RECOMBINANT (INTERFERON AFLA-2B) [Suspect]
     Indication: MALIGNANT MELANOMA
     Dosage: 10 MIU; ; SC, ; SC
     Route: 058
  2. INTERFERON ALFA-2B RECOMBINANT (INTERFERON AFLA-2B) [Suspect]
     Indication: MALIGNANT MELANOMA
     Dosage: 10 MIU; ; SC, ; SC
     Route: 058

REACTIONS (6)
  - MYOCARDIAL INFARCTION [None]
  - TOXICITY TO VARIOUS AGENTS [None]
  - DEPRESSION [None]
  - PULMONARY EMBOLISM [None]
  - OPTIC ATROPHY [None]
  - PSORIASIS [None]
